FAERS Safety Report 24977332 (Version 2)
Quarter: 2025Q1

REPORT INFORMATION
  Report Type: Spontaneous
  Country: HU (occurrence: HU)
  Receive Date: 20250217
  Receipt Date: 20250218
  Transmission Date: 20250409
  Serious: Yes (Hospitalization, Other)
  Sender: PURDUE
  Company Number: HU-PURDUE-USA-2025-0315479

PATIENT
  Age: 40 Year
  Sex: Male

DRUGS (1)
  1. FENOFIBRATE [Suspect]
     Active Substance: FENOFIBRATE
     Indication: Dyslipidaemia
     Route: 065

REACTIONS (3)
  - Gut fermentation syndrome [Recovering/Resolving]
  - Hepatitis [Recovering/Resolving]
  - Drug ineffective [Unknown]
